FAERS Safety Report 12174306 (Version 1)
Quarter: 2016Q1

REPORT INFORMATION
  Report Type: Not Available
  Country: TW (occurrence: TW)
  Receive Date: 20160313
  Receipt Date: 20160313
  Transmission Date: 20160526
  Serious: Yes (Death, Hospitalization)
  Sender: FDA-Public Use
  Company Number: TW-ANIPHARMA-2016-TW-000001

PATIENT
  Age: 49 Year
  Sex: Male

DRUGS (1)
  1. LITHIUM CARBONATE (NON-SPECIFIC) [Suspect]
     Active Substance: LITHIUM

REACTIONS (5)
  - Tubulointerstitial nephritis [Fatal]
  - Glomerulosclerosis [Fatal]
  - Septic shock [Fatal]
  - Renal cyst [Fatal]
  - Respiratory failure [Fatal]
